FAERS Safety Report 5523752-6 (Version None)
Quarter: 2007Q4

REPORT INFORMATION
  Report Type: 
  Country: None (occurrence: None)
  Receive Date: 20071121
  Receipt Date: 20071115
  Transmission Date: 20080405
  Serious: Yes (Death)
  Sender: FDA-Public Use
  Company Number: HK-GENENTECH-251456

PATIENT
  Age: 39 Year
  Sex: Male

DRUGS (4)
  1. RITUXIMAB [Suspect]
     Indication: THROMBOTIC MICROANGIOPATHY
     Dosage: UNK, UNKNOWN
     Route: 065
  2. RITUXIMAB [Suspect]
     Dosage: UNK, UNKNOWN
     Route: 065
  3. CYCLOSPORINE [Concomitant]
     Indication: THROMBOTIC MICROANGIOPATHY
  4. CORTICOSTEROIDS (UNK INGREDIENTS) [Concomitant]
     Indication: THROMBOTIC MICROANGIOPATHY

REACTIONS (1)
  - FUNGAL SEPSIS [None]
